FAERS Safety Report 10934548 (Version 3)
Quarter: 2015Q2

REPORT INFORMATION
  Report Type: Spontaneous
  Country: FR (occurrence: FR)
  Receive Date: 20150320
  Receipt Date: 20150417
  Transmission Date: 20150821
  Serious: Yes (Other)
  Sender: FDA-Public Use
  Company Number: FR-JNJFOC-20150304235

PATIENT
  Age: 85 Year
  Sex: Female
  Weight: 56.9 kg

DRUGS (11)
  1. BACLOFENE [Concomitant]
     Active Substance: BACLOFEN
     Route: 048
  2. MODOPAR [Concomitant]
     Active Substance: BENSERAZIDE HYDROCHLORIDE\LEVODOPA
     Route: 048
  3. RIVOTRIL [Concomitant]
     Active Substance: CLONAZEPAM
     Route: 065
  4. INEXIUM [Concomitant]
     Active Substance: ESOMEPRAZOLE
     Route: 048
  5. KETODERM [Suspect]
     Active Substance: KETOCONAZOLE
     Indication: SEBORRHOEIC DERMATITIS
     Route: 003
     Dates: start: 20150305, end: 20150305
  6. KETODERM [Suspect]
     Active Substance: KETOCONAZOLE
     Indication: FUNGAL INFECTION
     Route: 003
     Dates: start: 20150305, end: 20150305
  7. ALPRAZOLAM. [Concomitant]
     Active Substance: ALPRAZOLAM
     Route: 048
  8. DUPHALAC [Concomitant]
     Active Substance: LACTULOSE
     Route: 048
  9. NACL [Concomitant]
     Active Substance: SODIUM CHLORIDE
     Route: 048
  10. MATRIFEN [Concomitant]
     Active Substance: FENTANYL
     Route: 065
  11. POTASSIUM [Concomitant]
     Active Substance: POTASSIUM
     Route: 048

REACTIONS (11)
  - Tachycardia [Recovered/Resolved]
  - Hyperthermia [Recovered/Resolved]
  - Burning sensation [Recovered/Resolved]
  - Oxygen saturation decreased [Recovered/Resolved]
  - Hypertensive crisis [Recovered/Resolved]
  - Livedo reticularis [Recovered/Resolved]
  - Dyspnoea [Recovered/Resolved]
  - Erythema [Recovering/Resolving]
  - Vomiting [Recovered/Resolved]
  - Hypertension [Recovered/Resolved]
  - Wrong technique in drug usage process [Unknown]

NARRATIVE: CASE EVENT DATE: 20150305
